FAERS Safety Report 12969437 (Version 1)
Quarter: 2016Q4

REPORT INFORMATION
  Report Type: Other
  Country: US (occurrence: US)
  Receive Date: 20161123
  Receipt Date: 20161123
  Transmission Date: 20170207
  Serious: Yes (Hospitalization)
  Sender: FDA-Public Use
  Company Number: US-BELCHER PHARMACEUTICALS, LLC-2016VTS00287

PATIENT
  Age: 64 Year
  Sex: Female
  Weight: 86.17 kg

DRUGS (6)
  1. HYDROCHLOROTHIAZIDE. [Concomitant]
     Active Substance: HYDROCHLOROTHIAZIDE
     Dosage: .5 TABLETS, 1X/DAY
  2. PROBIOTICS [Concomitant]
     Active Substance: PROBIOTICS NOS
  3. THYROID TABS [Concomitant]
     Active Substance: THYROID, UNSPECIFIED
     Dosage: 50 ?G, 1X/DAY
  4. HYOSCYAMINE SULFATE. [Suspect]
     Active Substance: HYOSCYAMINE SULFATE
     Indication: ABDOMINAL PAIN
     Dosage: SOME DAYS NONE, OR UP TO 4X.DAY
     Route: 060
     Dates: start: 2015, end: 201609
  5. GAS RELIEF TABS [Concomitant]
  6. ALIVE GUMMY VITAMINS WOMEN^S OVER 50 [Concomitant]

REACTIONS (21)
  - Irritability [Not Recovered/Not Resolved]
  - Nephrolithiasis [Unknown]
  - Gastrointestinal pain [Recovering/Resolving]
  - Vision blurred [Not Recovered/Not Resolved]
  - Disturbance in attention [Not Recovered/Not Resolved]
  - Dysarthria [Not Recovered/Not Resolved]
  - Dry mouth [Not Recovered/Not Resolved]
  - Confusional state [Not Recovered/Not Resolved]
  - Muscle spasms [Not Recovered/Not Resolved]
  - Speech disorder [Not Recovered/Not Resolved]
  - Heart rate irregular [Recovering/Resolving]
  - Weight increased [Not Recovered/Not Resolved]
  - Insomnia [Not Recovered/Not Resolved]
  - Disorientation [Not Recovered/Not Resolved]
  - Dizziness [Not Recovered/Not Resolved]
  - Calculus bladder [Not Recovered/Not Resolved]
  - Feeling of body temperature change [Not Recovered/Not Resolved]
  - Balance disorder [Not Recovered/Not Resolved]
  - Fall [Recovered/Resolved]
  - Diverticulitis [Recovered/Resolved]
  - Contusion [Unknown]

NARRATIVE: CASE EVENT DATE: 2016
